FAERS Safety Report 5088953-2 (Version None)
Quarter: 2006Q3

REPORT INFORMATION
  Report Type: 
  Country: None (occurrence: None)
  Receive Date: 20060824
  Receipt Date: 20060824
  Transmission Date: 20061208
  Serious: No
  Sender: FDA-Public Use
  Company Number: None

PATIENT
  Age: 46 Year
  Sex: Female
  Weight: 47.6277 kg

DRUGS (1)
  1. CELLUVISC [Suspect]
     Indication: DRY EYE
     Dosage: 1 VIAL  1 OPHTHALMIC
     Route: 047
     Dates: start: 20060823, end: 20060823

REACTIONS (1)
  - VISION BLURRED [None]
